FAERS Safety Report 15458609 (Version 1)
Quarter: 2018Q3

REPORT INFORMATION
  Report Type: Spontaneous
  Country: US (occurrence: US)
  Receive Date: 20180930
  Receipt Date: 20180930
  Transmission Date: 20181020
  Serious: Yes (Other)
  Sender: FDA-Public Use
  Company Number: None

PATIENT
  Age: 59 Year
  Sex: Male
  Weight: 90 kg

DRUGS (6)
  1. HERABAL SUPPLEMENTS [Concomitant]
  2. FLUCONAZOLE. [Concomitant]
     Active Substance: FLUCONAZOLE
  3. PURITANS PRIDE MILK THISTLE EXTRACT [Concomitant]
  4. VORICONAZOLE 200MG TABLETS [Suspect]
     Active Substance: VORICONAZOLE
     Indication: CANDIDA INFECTION
     Dosage: ?          QUANTITY:1 TABLET(S);?
     Route: 048
     Dates: start: 20180710, end: 20180714
  5. PURITAN^S PRIDE ULTRA MAN 50 PLUS DAILY MULTIVITAMIN [Concomitant]
  6. VALERIAN ROOT [Concomitant]
     Active Substance: VALERIAN

REACTIONS (6)
  - Abdominal pain [None]
  - Visual impairment [None]
  - Dreamy state [None]
  - Altered visual depth perception [None]
  - Stress at work [None]
  - Therapy cessation [None]

NARRATIVE: CASE EVENT DATE: 20180727
